FAERS Safety Report 8765172 (Version 2)
Quarter: 2013Q2

REPORT INFORMATION
  Report Type: Report from Study
  Country: JP (occurrence: JP)
  Receive Date: 20120903
  Receipt Date: 20130416
  Transmission Date: 20140414
  Serious: Yes (Hospitalization)
  Sender: FDA-Public Use
  Company Number: JP-009507513-1208JPN008848

PATIENT
  Age: 47 Year
  Sex: Male
  Weight: 65 kg

DRUGS (16)
  1. PEGINTRON [Suspect]
     Indication: CHRONIC HEPATITIS C
     Dosage: 1.5 MICROGRAM PER KILOGRAM, QW
     Route: 058
     Dates: start: 20120509, end: 20120529
  2. PEGINTRON [Suspect]
     Dosage: 80 MICROGRAM PER BODY, QW
     Route: 058
     Dates: start: 20120530, end: 20120605
  3. PEGINTRON [Suspect]
     Dosage: 40 MICROGRAM PER BODY, QW
     Route: 058
     Dates: start: 20120606, end: 20120612
  4. PEGINTRON [Suspect]
     Dosage: 60 MICROGRAM PER BODY, QW
     Route: 058
     Dates: start: 20120613, end: 20120620
  5. PEGINTRON [Suspect]
     Dosage: 70 MICROGRAM PER BODY, QW
     Route: 058
     Dates: start: 20120621, end: 20120711
  6. PEGINTRON [Suspect]
     Dosage: UNK
  7. REBETOL [Suspect]
     Indication: CHRONIC HEPATITIS C
     Dosage: 800 MG, QD
     Route: 048
     Dates: start: 20120509, end: 20120522
  8. REBETOL [Suspect]
     Dosage: 600 MG, QD
     Route: 048
     Dates: start: 20120523, end: 20120529
  9. REBETOL [Suspect]
     Dosage: 400 MG, QD
     Route: 048
     Dates: start: 20120530, end: 20120605
  10. REBETOL [Suspect]
     Dosage: 500 MG, QD
     Route: 048
     Dates: start: 20120606, end: 20120612
  11. REBETOL [Suspect]
     Dosage: 400 MG, QD
     Route: 048
     Dates: start: 20120613, end: 20120711
  12. REBETOL [Suspect]
     Dosage: UNK
  13. TELAVIC [Suspect]
     Indication: CHRONIC HEPATITIS C
     Dosage: 2250 MG, QD
     Route: 048
     Dates: start: 20120509, end: 20120711
  14. LOXONIN [Concomitant]
     Indication: PROPHYLAXIS
     Dosage: 3 DF, QD
     Route: 048
     Dates: start: 20120509, end: 20120511
  15. MUCOSTA [Concomitant]
     Indication: PROPHYLAXIS
     Dosage: 3 DF, QD
     Route: 048
     Dates: start: 20120509, end: 20120511
  16. NAUZELIN [Concomitant]
     Indication: ABDOMINAL DISCOMFORT
     Dosage: 3 DF, QD
     Route: 048
     Dates: start: 20120516, end: 20120711

REACTIONS (1)
  - Syncope [Recovered/Resolved]
